FAERS Safety Report 8192653-X (Version None)
Quarter: 2012Q1

REPORT INFORMATION
  Report Type: 
  Country: None (occurrence: None)
  Receive Date: 20120308
  Receipt Date: 20120304
  Transmission Date: 20120608
  Serious: Yes (Hospitalization)
  Sender: FDA-Public Use
  Company Number: US-SANOFI-AVENTIS-2012SA014737

PATIENT
  Age: 33 Year
  Sex: Male

DRUGS (1)
  1. LANTUS [Suspect]
     Dosage: 25UNITS IN AM AND 35UNITS IN PM
     Route: 058

REACTIONS (3)
  - ROAD TRAFFIC ACCIDENT [None]
  - HYPOGLYCAEMIA [None]
  - BLOOD GLUCOSE INCREASED [None]
